FAERS Safety Report 5756264-5 (Version None)
Quarter: 2008Q2

REPORT INFORMATION
  Report Type: 
  Country: None (occurrence: None)
  Receive Date: 20080602
  Receipt Date: 20080522
  Transmission Date: 20081010
  Serious: Yes (Other)
  Sender: FDA-Public Use
  Company Number: JP-PFIZER INC-2008045344

PATIENT
  Age: 70 Year
  Sex: Female

DRUGS (1)
  1. DETRUSITOL LA [Suspect]
     Dosage: DAILY DOSE:4MG
     Route: 048

REACTIONS (1)
  - HYPERTENSION [None]
